FAERS Safety Report 6112119-8 (Version None)
Quarter: 2009Q1

REPORT INFORMATION
  Report Type: 
  Country: None (occurrence: None)
  Receive Date: 20090310
  Receipt Date: 20090223
  Transmission Date: 20090719
  Serious: Yes (Hospitalization)
  Sender: FDA-Public Use
  Company Number: 231132K09USA

PATIENT
  Age: 71 Year
  Sex: Female
  Weight: 74 kg

DRUGS (14)
  1. REBIF [Suspect]
     Indication: MULTIPLE SCLEROSIS
     Dosage: 44 MCG, 3 IN 1 WEEKS, SUBCUTANEOUS
     Route: 058
     Dates: start: 20080829
  2. TEGRETOL-XR [Concomitant]
  3. CELEXA [Concomitant]
  4. ZANTAC 150 [Concomitant]
  5. DITROPAN [Concomitant]
  6. FOSINOPRIL SODIUM [Concomitant]
  7. ZETIA [Concomitant]
  8. CRESTOR [Concomitant]
  9. AMITRIPTYLINE HYDROCHLORIDE [Concomitant]
  10. SYNTHROID [Concomitant]
  11. HYDROCHLOROTHIAZIDE [Concomitant]
  12. BACITRACIN [Concomitant]
  13. METHENAMINE (METHENAMINE) [Concomitant]
  14. DICLOFENAC (DICLOFENAC) [Concomitant]

REACTIONS (2)
  - COLITIS ISCHAEMIC [None]
  - HAEMORRHAGE [None]
